FAERS Safety Report 6943541-5 (Version None)
Quarter: 2010Q3

REPORT INFORMATION
  Report Type: 
  Country: None (occurrence: None)
  Receive Date: 20100826
  Receipt Date: 20100816
  Transmission Date: 20110219
  Serious: Yes (Death, Congenital Anomaly)
  Sender: FDA-Public Use
  Company Number: GB-ABBOTT-10P-167-0632385-00

PATIENT
  Sex: Female
  Weight: 3.4 kg

DRUGS (6)
  1. RITONAVIR [Suspect]
     Indication: DRUG EXPOSURE DURING PREGNANCY
     Route: 064
  2. RALTEGRAVIR [Suspect]
     Indication: DRUG EXPOSURE DURING PREGNANCY
     Route: 064
  3. DARUNAVIR [Suspect]
     Indication: DRUG EXPOSURE DURING PREGNANCY
     Route: 064
  4. ZIDOVUDINE [Suspect]
     Indication: DRUG EXPOSURE DURING PREGNANCY
     Route: 064
  5. TRUVADA [Suspect]
     Indication: DRUG EXPOSURE DURING PREGNANCY
     Route: 064
  6. ISENTRESS [Suspect]
     Indication: DRUG EXPOSURE DURING PREGNANCY
     Route: 064

REACTIONS (12)
  - AORTIC VALVE SCLEROSIS [None]
  - CARDIAC ARREST [None]
  - CARDIAC MURMUR [None]
  - CONGENITAL HEART VALVE DISORDER [None]
  - CONGENITAL PULMONARY VALVE DISORDER [None]
  - DRUG EXPOSURE DURING PREGNANCY [None]
  - LARGE FOR DATES BABY [None]
  - MATERNAL DRUGS AFFECTING FOETUS [None]
  - NEONATAL RESPIRATORY ARREST [None]
  - PULMONARY VALVE SCLEROSIS [None]
  - SUDDEN INFANT DEATH SYNDROME [None]
  - VENTRICULAR HYPERTROPHY [None]
